FAERS Safety Report 16766784 (Version 1)
Quarter: 2019Q4

REPORT INFORMATION
  Report Type: Spontaneous
  Country: US (occurrence: US)
  Receive Date: 20190902
  Receipt Date: 20190902
  Transmission Date: 20200122
  Serious: No
  Sender: FDA-Public Use
  Company Number: None

PATIENT
  Age: 69 Year
  Sex: Male
  Weight: 85.5 kg

DRUGS (1)
  1. OZEMPIC [Suspect]
     Active Substance: SEMAGLUTIDE
     Indication: GLYCOSYLATED HAEMOGLOBIN INCREASED
     Dosage: ?          QUANTITY:0.25 INJECTION(S);?
     Route: 058

REACTIONS (3)
  - Gastrooesophageal reflux disease [None]
  - Dysphagia [None]
  - Dyspepsia [None]

NARRATIVE: CASE EVENT DATE: 20190826
